FAERS Safety Report 13426771 (Version 1)
Quarter: 2017Q2

REPORT INFORMATION
  Report Type: Spontaneous
  Country: US (occurrence: US)
  Receive Date: 20170411
  Receipt Date: 20170411
  Transmission Date: 20170830
  Serious: Yes (Hospitalization, Disabling)
  Sender: FDA-Public Use
  Company Number: None

PATIENT
  Sex: Male

DRUGS (5)
  1. DEPAKOTE ER [Suspect]
     Active Substance: DIVALPROEX SODIUM
     Dosage: ?          QUANTITY:1 . , ?WWW.M?. NW .UWMMWM;?
  2. RISPERDAL [Suspect]
     Active Substance: RISPERIDONE
  3. HALDOL [Suspect]
     Active Substance: HALOPERIDOL
  4. THORAZINE [Concomitant]
     Active Substance: CHLORPROMAZINE
  5. CHLORPROMAZINE. [Concomitant]
     Active Substance: CHLORPROMAZINE

REACTIONS (2)
  - Mood altered [None]
  - Hallucination [None]

NARRATIVE: CASE EVENT DATE: 20160307
